FAERS Safety Report 11890939 (Version 4)
Quarter: 2017Q4

REPORT INFORMATION
  Report Type: Spontaneous
  Country: US (occurrence: US)
  Receive Date: 20160106
  Receipt Date: 20171101
  Transmission Date: 20180320
  Serious: Yes (Other)
  Sender: FDA-Public Use
  Company Number: US-PFIZER INC-2015465942

PATIENT
  Age: 81 Year
  Sex: Female
  Weight: 93.42 kg

DRUGS (50)
  1. METOPROLOL. [Concomitant]
     Active Substance: METOPROLOL
     Dosage: 50 MG, UNK
  2. LINZESS [Concomitant]
     Active Substance: LINACLOTIDE
     Dosage: 145 MG, 1X/DAY (30 MINUTES BEFORE BREAKFAST DAILY)
     Route: 048
  3. LOSARTAN. [Concomitant]
     Active Substance: LOSARTAN
     Dosage: 100 MG, 1X/DAY (AT LUNCH TIME)
     Route: 048
  4. FUROSEMIDE. [Concomitant]
     Active Substance: FUROSEMIDE
     Dosage: 40 MG, 1X/DAY
     Route: 048
  5. TYLENOL [Concomitant]
     Active Substance: ACETAMINOPHEN
     Dosage: 325 MG, 2X/DAY
     Route: 048
  6. ULTRAM [Concomitant]
     Active Substance: TRAMADOL HYDROCHLORIDE
     Indication: PAIN
     Dosage: (1-2 PO Q 6 HRS PRN)
     Route: 048
  7. LYRICA [Suspect]
     Active Substance: PREGABALIN
     Dosage: 150 MG, DAILY (100 MG CAPSULE(50 MG IN AM, 100MG AT BEDTIME)
     Dates: start: 20151208
  8. NORCO [Concomitant]
     Active Substance: ACETAMINOPHEN\HYDROCODONE BITARTRATE
     Indication: PAIN
     Dosage: 1 TAB  EVERY 6 HOURS
     Route: 048
  9. PREDNISONE. [Concomitant]
     Active Substance: PREDNISONE
     Dosage: 10 MG, 1X/DAY 1 TAB
     Route: 048
  10. CARDURA [Concomitant]
     Active Substance: DOXAZOSIN MESYLATE
     Dosage: 2 MG, 1X/DAY (4 MG, 1/2 TABLET AT BEDTIME)
     Route: 048
  11. FLANDERS BUTTOCKS [Concomitant]
     Active Substance: PETROLATUM\ZINC OXIDE
     Indication: SKIN IRRITATION
     Dosage: 1 DF, AS NEEDED
     Route: 061
  12. FIBERCON [Concomitant]
     Active Substance: CALCIUM POLYCARBOPHIL
     Dosage: 625 MG, UNK
  13. SYSTANE (HYPROMELLOSE 2910 (4000 MPA.S)) [Concomitant]
     Active Substance: HYPROMELLOSE 2910 (4000 MPA.S)
     Dosage: UNK
     Route: 047
  14. ZYRTEC [Concomitant]
     Active Substance: CETIRIZINE HYDROCHLORIDE
     Dosage: 10 MG, DAILY
     Route: 048
  15. ULORIC [Concomitant]
     Active Substance: FEBUXOSTAT
     Dosage: 40 MG, DAILY
     Route: 048
  16. DUONEB [Concomitant]
     Active Substance: ALBUTEROL SULFATE\IPRATROPIUM BROMIDE
     Indication: WHEEZING
     Dosage: 3 ML BY NEBULIZATION EVERY 4 (FOUR) HOURS AS NEEDED
  17. OMEPRAZOLE. [Concomitant]
     Active Substance: OMEPRAZOLE
     Dosage: 40 MG, 1X/DAY
     Route: 048
  18. SIMVASTATIN. [Concomitant]
     Active Substance: SIMVASTATIN
     Dosage: 40 MG, 1X/DAY (AT BEDTIME)
     Route: 048
  19. PRILOSEC [Concomitant]
     Active Substance: OMEPRAZOLE MAGNESIUM
     Dosage: 40 MG, 1X/DAY
     Route: 048
  20. LOPRESSOR [Concomitant]
     Active Substance: METOPROLOL TARTRATE
     Dosage: 50 MG, 2X/DAY
     Route: 048
  21. DELTASONE [Concomitant]
     Active Substance: PREDNISONE
     Dosage: 5 MG, 1X/DAY
     Route: 048
  22. DEMADEX [Concomitant]
     Active Substance: TORSEMIDE
     Dosage: 100 MG, DAILY
     Route: 048
  23. LYRICA [Suspect]
     Active Substance: PREGABALIN
     Dosage: 50 MG AFTER BREAKFAST AND 75 MG NIGHTLY
  24. ZOCOR [Concomitant]
     Active Substance: SIMVASTATIN
     Dosage: 40 MG, DAILY
     Route: 048
  25. SURFAK [Concomitant]
     Indication: CONSTIPATION
     Dosage: 480 MG, 1X/DAY (240 MG 2 CAPS ORALLY ONCE A DAY)
     Route: 048
  26. CENTRUM SILVER [Concomitant]
     Active Substance: MINERALS\VITAMINS
     Dosage: UNK (CENTRUM SILVER 0.4-300-250 MG-MCG-MCG)
  27. AMARYL [Concomitant]
     Active Substance: GLIMEPIRIDE
     Dosage: 1 MG, DAILY
     Route: 048
  28. FERROUS SULFATE. [Concomitant]
     Active Substance: FERROUS SULFATE
     Dosage: 160 MG, DAILY (50 MG IRON)
     Route: 048
  29. APRESOLINE HYDROCHLORIDE [Concomitant]
     Active Substance: HYDRALAZINE HYDROCHLORIDE
  30. GLIMEPIRIDE. [Concomitant]
     Active Substance: GLIMEPIRIDE
     Dosage: 1 MG, DAILY
     Route: 048
  31. ATIVAN [Concomitant]
     Active Substance: LORAZEPAM
     Indication: ANXIETY
     Dosage: 0.5 MG, 1X/DAY (1 TABLET (0.5 MG) BY MOUTH AT BEDTIME AS NEEDED FOR ANXIETY)
     Route: 048
  32. PROAIR HFA [Concomitant]
     Active Substance: ALBUTEROL SULFATE
     Indication: WHEEZING
     Dosage: INHALE 2 PUFFS EVERY 4 (FOUR) HOURS AS NEEDED
     Route: 055
  33. FOLVITE [Concomitant]
     Active Substance: FOLIC ACID
     Dosage: 1 MG, DAILY
     Route: 048
  34. SINGULAIR [Concomitant]
     Active Substance: MONTELUKAST SODIUM
     Dosage: 10 MG, DAILY
     Route: 048
  35. METOPROLOL. [Concomitant]
     Active Substance: METOPROLOL
     Dosage: 150 MG, 2X/DAY (100 MG 1 1/2 ORALLY 2 TIMES A DAY AT BREAKFAST AND SUPER)
     Route: 048
  36. NITROFURANTOIN. [Concomitant]
     Active Substance: NITROFURANTOIN
     Dosage: 50 MG, 1X/DAY
     Route: 048
  37. STOOL SOFTENER (DOCUSATE) [Concomitant]
     Active Substance: DOCUSATE
     Dosage: 240 MG, DAILY
  38. TORSEMIDE. [Concomitant]
     Active Substance: TORSEMIDE
  39. POTASSIUM CHLORIDE. [Concomitant]
     Active Substance: POTASSIUM CHLORIDE
     Dosage: 10 MEQ, DAILY (10 MEQ 1 TABLET ORALLY DAILY)
     Route: 048
  40. COZAAR [Concomitant]
     Active Substance: LOSARTAN POTASSIUM
     Dosage: 100 MG, DAILY
     Route: 048
  41. KLOR-CON [Concomitant]
     Active Substance: POTASSIUM CHLORIDE
     Dosage: 10 MEQ, ALTERNATE DAY(TAKE 1 TABLET (10 MEQ) BY MOUTH EVERY OTHER DAY)
     Route: 048
  42. FLONASE [Concomitant]
     Active Substance: FLUTICASONE PROPIONATE
     Dosage: 2 SPRAYS INTO EACH NOSTRIL DAILY
     Route: 045
  43. LYRICA [Suspect]
     Active Substance: PREGABALIN
     Dosage: 150MG, DAILY (50MG, 1 CAPSULE IN AM AND 2 CAPSULES IN PM)
     Route: 048
     Dates: start: 20161117
  44. LYRICA [Suspect]
     Active Substance: PREGABALIN
     Dosage: 100 MG, UNK
  45. LORAZEPAM. [Concomitant]
     Active Substance: LORAZEPAM
     Indication: MUSCLE SPASMS
     Dosage: 0.5 MG EVERY 8 HOURS AS NEEDED
     Route: 048
  46. HYDRALAZINE HYDROCHLORIDE. [Concomitant]
     Active Substance: HYDRALAZINE HYDROCHLORIDE
     Dosage: 10 MG, 3X/DAY
     Route: 048
  47. PRILOSEC [Concomitant]
     Active Substance: OMEPRAZOLE MAGNESIUM
     Dosage: 20 MG, DAILY
     Route: 048
  48. MAGNESIUM OXIDE. [Concomitant]
     Active Substance: MAGNESIUM OXIDE
     Dosage: 400 MG, DAILY
  49. DUONEB [Concomitant]
     Active Substance: ALBUTEROL SULFATE\IPRATROPIUM BROMIDE
     Indication: DYSPNOEA
  50. RHEUMATREX [Concomitant]
     Active Substance: METHOTREXATE SODIUM
     Dosage: 10 MG, WEEKLY (TAKE 4 PILLS EVERY WEEK)
     Route: 048

REACTIONS (4)
  - Oedema peripheral [Unknown]
  - Antinuclear antibody positive [Unknown]
  - Chronic kidney disease [Unknown]
  - Anaemia [Unknown]
